FAERS Safety Report 7366319-X (Version None)
Quarter: 2011Q1

REPORT INFORMATION
  Report Type: 
  Country: None (occurrence: None)
  Receive Date: 20110317
  Receipt Date: 20110317
  Transmission Date: 20110831
  Serious: Yes (Death)
  Sender: FDA-Public Use
  Company Number: None

PATIENT
  Sex: Male

DRUGS (1)
  1. RESTASIS [Suspect]
     Indication: PROPHYLAXIS AGAINST GRAFT VERSUS HOST DISEASE
     Dosage: 1 DROP EACH EYE TWICE DAILY SUBCONJUNCTIVAL
     Route: 057
     Dates: start: 20110121, end: 20110221

REACTIONS (4)
  - FEBRILE NEUTROPENIA [None]
  - ARRHYTHMIA [None]
  - SEPSIS [None]
  - GASTROINTESTINAL HAEMORRHAGE [None]
